FAERS Safety Report 4579341-3 (Version None)
Quarter: 2005Q1

REPORT INFORMATION
  Report Type: 
  Country: None (occurrence: None)
  Receive Date: 20050209
  Receipt Date: 20050209
  Transmission Date: 20050727
  Serious: Yes (Disabling)
  Sender: FDA-Public Use
  Company Number: None

PATIENT
  Age: 60 Year
  Sex: Female
  Weight: 58.9676 kg

DRUGS (1)
  1. LEVAQUIN [Suspect]
     Indication: PNEUMONIA
     Dosage: 1/DAY
     Dates: start: 20041022, end: 20041031

REACTIONS (4)
  - DEPRESSION [None]
  - PAIN [None]
  - PSYCHOTIC DISORDER [None]
  - TINNITUS [None]
